FAERS Safety Report 20160703 (Version 7)
Quarter: 2022Q4

REPORT INFORMATION
  Report Type: Report from Study
  Country: US (occurrence: US)
  Receive Date: 20211208
  Receipt Date: 20221102
  Transmission Date: 20230113
  Serious: No
  Sender: FDA-Public Use
  Company Number: US-NOVARTISTESTPH-NVSC2021US280082

PATIENT
  Sex: Male

DRUGS (1)
  1. ENTRESTO [Suspect]
     Active Substance: SACUBITRIL\VALSARTAN
     Indication: Product used for unknown indication
     Dosage: 1 DOSAGE FORM, BID
     Route: 048
     Dates: start: 202110

REACTIONS (9)
  - Weight decreased [Unknown]
  - Stress [Unknown]
  - Nasopharyngitis [Unknown]
  - Anxiety [Unknown]
  - Weight fluctuation [Unknown]
  - Frustration tolerance decreased [Unknown]
  - Cough [Recovered/Resolved]
  - Cough [Unknown]
  - Hypersensitivity [Unknown]

NARRATIVE: CASE EVENT DATE: 20220101
